FAERS Safety Report 7898297-9 (Version None)
Quarter: 2011Q4

REPORT INFORMATION
  Report Type: 
  Country: None (occurrence: None)
  Receive Date: 20111107
  Receipt Date: 20111102
  Transmission Date: 20120403
  Serious: Yes (Death, Other)
  Sender: FDA-Public Use
  Company Number: US-AMGEN-USASP2011044430

PATIENT
  Age: 59 Year
  Sex: Male
  Weight: 91.338 kg

DRUGS (20)
  1. DURAGESIC-100 [Concomitant]
     Dosage: 50 MUG, UNK
  2. ALBUTEROL [Concomitant]
  3. AVODART [Concomitant]
     Dosage: 0.5 MG, QD
  4. PREDNISONE [Concomitant]
     Dosage: 30 MG, UNK
  5. PAXIL [Concomitant]
     Dosage: 40 MG, UNK
  6. POTASSIUM [Concomitant]
     Dosage: 10 MEQ, UNK
  7. ANTINEOPLASTIC AGENTS [Concomitant]
  8. ZYPREXA [Concomitant]
     Dosage: 2.5 MG, UNK
  9. DILAUDID [Concomitant]
     Indication: PAIN
  10. NEULASTA [Suspect]
     Indication: CHEMOTHERAPY
     Dosage: 6 MG, ONE TIME DOSE
     Route: 058
     Dates: start: 20110823, end: 20110823
  11. SYMBICORT [Concomitant]
  12. XANAX [Concomitant]
     Dosage: 1 MG, UNK
  13. NEURONTIN [Concomitant]
     Dosage: 900 MG, Q8H
  14. COUMADIN [Concomitant]
     Dosage: 2.5 MG, UNK
  15. PROTONIX [Concomitant]
     Dosage: 40 MG, UNK
  16. FOLIC ACID [Concomitant]
  17. FLORINEF [Concomitant]
     Dosage: 0.1 MG, UNK
  18. TRAZODONE HYDROCHLORIDE [Concomitant]
     Dosage: 50 MG, UNK
  19. SENOKOT [Concomitant]
  20. ZOFRAN [Concomitant]
     Dosage: 4 MG, Q6H

REACTIONS (2)
  - DEATH [None]
  - GENERAL PHYSICAL HEALTH DETERIORATION [None]
